FAERS Safety Report 9127509 (Version 1)
Quarter: 2013Q1

REPORT INFORMATION
  Report Type: Spontaneous
  Country: US (occurrence: US)
  Receive Date: 20130228
  Receipt Date: 20130228
  Transmission Date: 20140127
  Serious: No
  Sender: FDA-Public Use
  Company Number: US-GLAXOSMITHKLINE-A0980799A

PATIENT
  Age: 4 Year
  Sex: Male

DRUGS (2)
  1. LAMICTAL [Suspect]
     Indication: CONVULSION
     Dosage: 100MG UNKNOWN
     Route: 048
  2. KEPPRA [Concomitant]

REACTIONS (2)
  - Lethargy [Not Recovered/Not Resolved]
  - Wrong technique in drug usage process [Unknown]
